FAERS Safety Report 6210432-7 (Version None)
Quarter: 2009Q2

REPORT INFORMATION
  Report Type: 
  Country: None (occurrence: None)
  Receive Date: 20090601
  Receipt Date: 20090529
  Transmission Date: 20091009
  Serious: Yes (Hospitalization)
  Sender: FDA-Public Use
  Company Number: A0780308A

PATIENT
  Age: 55 Year
  Sex: Female

DRUGS (8)
  1. ADVAIR HFA [Suspect]
     Indication: ASTHMA
     Route: 055
     Dates: start: 20040101
  2. FLONASE [Suspect]
     Indication: DRUG USE FOR UNKNOWN INDICATION
     Route: 045
  3. VENTOLIN [Suspect]
     Indication: DRUG USE FOR UNKNOWN INDICATION
  4. LYRICA [Concomitant]
  5. DETROL [Concomitant]
  6. ATARAX [Concomitant]
  7. VICODIN [Concomitant]
  8. HYDROCODONE BITARTRATE + ACETAMINOPHEN [Concomitant]

REACTIONS (6)
  - BIOPSY LUNG [None]
  - COLLAPSE OF LUNG [None]
  - FALL [None]
  - HYPOAESTHESIA [None]
  - LUNG DISORDER [None]
  - MOVEMENT DISORDER [None]
